FAERS Safety Report 9596511 (Version 1)
Quarter: 2013Q4

REPORT INFORMATION
  Report Type: Spontaneous
  Country: US (occurrence: US)
  Receive Date: 20131004
  Receipt Date: 20131004
  Transmission Date: 20140711
  Serious: No
  Sender: FDA-Public Use
  Company Number: US-AMGEN-USASP2012066833

PATIENT
  Sex: Male

DRUGS (5)
  1. ENBREL [Suspect]
     Indication: PSORIASIS
     Dosage: 50 MG, QWK
     Route: 058
  2. FISH OIL [Concomitant]
     Dosage: UNK
  3. ALEVE [Concomitant]
     Dosage: 220 MG, UNK
  4. ASPIRIN LOW [Concomitant]
     Dosage: 81 MG, UNK
  5. ADVIL                              /00044201/ [Concomitant]
     Dosage: 200 MG, UNK

REACTIONS (4)
  - Haemorrhage [Unknown]
  - Increased tendency to bruise [Unknown]
  - Bronchitis [Unknown]
  - Sinusitis [Unknown]
